FAERS Safety Report 21393798 (Version 1)
Quarter: 2022Q3

REPORT INFORMATION
  Report Type: Spontaneous
  Country: IT (occurrence: IT)
  Receive Date: 20220930
  Receipt Date: 20220930
  Transmission Date: 20221026
  Serious: Yes (Other)
  Sender: FDA-Public Use
  Company Number: IT-ROCHE-1767575

PATIENT
  Age: 73 Year
  Sex: Male

DRUGS (2)
  1. RIBAVIRIN [Suspect]
     Active Substance: RIBAVIRIN
     Indication: Chronic hepatitis C
     Dosage: 800 MILLIGRAM
     Route: 065
     Dates: start: 20110112, end: 20110405
  2. PEGINTERFERON ALFA-2A [Suspect]
     Active Substance: PEGINTERFERON ALFA-2A
     Indication: Chronic hepatitis C
     Dosage: 180 MICROGRAM
     Route: 065
     Dates: start: 20110112, end: 20110405

REACTIONS (3)
  - Ascites [Recovered/Resolved]
  - Anaemia [Recovered/Resolved]
  - Hepatic failure [Recovered/Resolved]

NARRATIVE: CASE EVENT DATE: 20110214
